FAERS Safety Report 7823673-X (Version None)
Quarter: 2011Q4

REPORT INFORMATION
  Report Type: 
  Country: None (occurrence: None)
  Receive Date: 20111019
  Receipt Date: 20111019
  Transmission Date: 20120403
  Serious: Yes (Other)
  Sender: FDA-Public Use
  Company Number: None

PATIENT
  Age: 24 Year
  Sex: Female
  Weight: 65.77 kg

DRUGS (1)
  1. OXYMETAZOLINE HCL [Suspect]
     Indication: NASAL CONGESTION
     Dosage: 0.05% OR 2 TO 3 SPRAYS
     Route: 045
     Dates: start: 20111016, end: 20111018

REACTIONS (2)
  - ANOSMIA [None]
  - AGEUSIA [None]
